FAERS Safety Report 16245242 (Version 3)
Quarter: 2019Q2

REPORT INFORMATION
  Report Type: Report from Study
  Country: DE (occurrence: DE)
  Receive Date: 20190426
  Receipt Date: 20190607
  Transmission Date: 20190711
  Serious: Yes (Hospitalization, Other)
  Sender: FDA-Public Use
  Company Number: DE-APOPHARMA USA, INC.-2019AP012533

PATIENT
  Age: 50 Year
  Sex: Female
  Weight: 82 kg

DRUGS (3)
  1. DEFERIPRONE [Suspect]
     Active Substance: DEFERIPRONE
     Indication: PARKINSON^S DISEASE
     Dosage: 29 MG/KG, QD
     Route: 048
     Dates: start: 20190112, end: 20190418
  2. MIRTAZAPINE. [Concomitant]
     Active Substance: MIRTAZAPINE
     Indication: DEPRESSION
  3. MIRTAZAPINE. [Concomitant]
     Active Substance: MIRTAZAPINE
     Indication: SLEEP DISORDER
     Dosage: 15 MG, UNKNOWN
     Route: 048
     Dates: start: 20150411

REACTIONS (2)
  - Confusional state [Recovered/Resolved with Sequelae]
  - Acute psychosis [Recovered/Resolved with Sequelae]

NARRATIVE: CASE EVENT DATE: 20190417
